FAERS Safety Report 6344642-5 (Version None)
Quarter: 2009Q3

REPORT INFORMATION
  Report Type: 
  Country: None (occurrence: None)
  Receive Date: 20090903
  Receipt Date: 20090819
  Transmission Date: 20100115
  Serious: Yes (Other)
  Sender: FDA-Public Use
  Company Number: AUR-APL-2009-00458

PATIENT
  Age: 43 Year
  Sex: Female

DRUGS (2)
  1. LAMOTRIGINE [Suspect]
     Indication: BIPOLAR DISORDER
     Dosage: 300MG - DAILY
  2. LEVOSULPIRIDE [Suspect]
     Indication: BIPOLAR DISORDER
     Dosage: 400MG - DAILY

REACTIONS (1)
  - TARDIVE DYSKINESIA [None]
